FAERS Safety Report 9057309 (Version 1)
Quarter: 2013Q1

REPORT INFORMATION
  Report Type: Spontaneous
  Country: DE (occurrence: DE)
  Receive Date: 20130131
  Receipt Date: 20130131
  Transmission Date: 20140127
  Serious: Yes (Hospitalization)
  Sender: FDA-Public Use
  Company Number: DE-GLAXOSMITHKLINE-D0078604A

PATIENT
  Sex: 0

DRUGS (1)
  1. VOTRIENT [Suspect]
     Indication: RENAL CELL CARCINOMA
     Dosage: 200MG PER DAY
     Route: 065
     Dates: start: 201206

REACTIONS (2)
  - Diarrhoea [Unknown]
  - Glomerular filtration rate decreased [Unknown]
